FAERS Safety Report 7683814-4 (Version None)
Quarter: 2011Q3

REPORT INFORMATION
  Report Type: 
  Country: None (occurrence: None)
  Receive Date: 20110815
  Receipt Date: 20110802
  Transmission Date: 20111222
  Serious: No
  Sender: FDA-Public Use
  Company Number: US-B.I. PHARMACEUTICALS,INC./RIDGEFIELD-2011-BP-01272BP

PATIENT
  Sex: Female

DRUGS (8)
  1. CARVEDILOL [Concomitant]
     Dosage: 6.25 MG
  2. PRADAXA [Suspect]
     Indication: ATRIAL FIBRILLATION
     Dosage: 300 MG
     Route: 048
     Dates: start: 20110103, end: 20110114
  3. PRADAXA [Suspect]
  4. AMIODARONE HCL [Concomitant]
     Dosage: 200 MG
  5. SIMVASTATIN [Concomitant]
     Dosage: 20 MG
  6. ASPIRIN [Concomitant]
     Dosage: 81 MG
  7. HYDROCHLOROTHIAZIDE [Concomitant]
     Dosage: 12.5 MG
  8. ESTRADIOL [Concomitant]
     Dosage: 10 MG

REACTIONS (5)
  - FALL [None]
  - MUSCULOSKELETAL PAIN [None]
  - PAIN [None]
  - SKIN MASS [None]
  - BLOOD URINE PRESENT [None]
